FAERS Safety Report 8924879 (Version 1)
Quarter: 2012Q4

REPORT INFORMATION
  Report Type: 
  Country: RU (occurrence: RU)
  Receive Date: 20121126
  Receipt Date: 20121126
  Transmission Date: 20130627
  Serious: Yes (Other)
  Sender: FDA-Public Use
  Company Number: RU-ASTRAZENECA-2012SE88577

PATIENT
  Age: 35 Day
  Sex: Female

DRUGS (9)
  1. SYNAGIS [Suspect]
     Indication: IMMUNISATION
     Route: 030
     Dates: start: 20121009
  2. ZYVOX [Suspect]
     Dates: start: 201210
  3. FORTUM [Concomitant]
     Indication: PNEUMONIA
  4. FORTUM [Concomitant]
     Indication: ENTEROCOLITIS
  5. CALTEINE [Concomitant]
     Indication: APNOEA
  6. EPOCRIN [Concomitant]
     Indication: ANAEMIA NEONATAL
     Route: 058
     Dates: start: 201210
  7. VITAMIN D [Concomitant]
     Indication: VITAMIN SUPPLEMENTATION
     Dates: start: 201210
  8. L-THYROXINE [Concomitant]
     Indication: CONGENITAL HYPOTHYROIDISM
     Dosage: 10 MCG/KG
     Dates: start: 201210
  9. BIFIFORM [Concomitant]
     Route: 048
     Dates: start: 201210

REACTIONS (3)
  - Hepatic enzyme increased [Unknown]
  - Blood bilirubin increased [Unknown]
  - Cholestasis [Unknown]
